FAERS Safety Report 23951148 (Version 1)
Quarter: 2024Q2

REPORT INFORMATION
  Report Type: Report from Study
  Country: US (occurrence: US)
  Receive Date: 20240607
  Receipt Date: 20240607
  Transmission Date: 20240716
  Serious: No
  Sender: FDA-Public Use
  Company Number: US-SPRINGWORKS THERAPEUTICS-SW-001504

PATIENT
  Age: 41 Year
  Sex: Female

DRUGS (3)
  1. NIROGACESTAT [Suspect]
     Active Substance: NIROGACESTAT
     Indication: Product used for unknown indication
     Dosage: 150 MILLIGRAM, BID
     Route: 048
     Dates: start: 20240220
  2. NIROGACESTAT [Suspect]
     Active Substance: NIROGACESTAT
     Dosage: 250 MILLIGRAM, QD (100 MG MORNING, 150 MG EVENING)
     Route: 048
     Dates: start: 20240220
  3. AUGMENTIN [Concomitant]
     Active Substance: AMOXICILLIN\CLAVULANATE POTASSIUM
     Indication: Pharyngitis streptococcal
     Dosage: UNK

REACTIONS (28)
  - Dry mouth [Recovered/Resolved]
  - Increased upper airway secretion [Recovered/Resolved]
  - Vitreous floaters [Not Recovered/Not Resolved]
  - Skin irritation [Recovered/Resolved]
  - Abdominal pain upper [Recovering/Resolving]
  - Brain fog [Not Recovered/Not Resolved]
  - Dry skin [Not Recovered/Not Resolved]
  - Lip dry [Not Recovered/Not Resolved]
  - Flatulence [Recovering/Resolving]
  - Throat irritation [Unknown]
  - Abdominal discomfort [Recovering/Resolving]
  - Abnormal dreams [Unknown]
  - Feeling hot [Unknown]
  - Memory impairment [Unknown]
  - Menstruation delayed [Unknown]
  - Erythema [Recovered/Resolved]
  - Rash pruritic [Recovered/Resolved]
  - Pharyngitis streptococcal [Unknown]
  - Ear pain [Unknown]
  - Dermatitis acneiform [Recovered/Resolved]
  - Diarrhoea [Not Recovered/Not Resolved]
  - Rash [Recovered/Resolved]
  - Fatigue [Recovered/Resolved]
  - Ovarian dysfunction [Not Recovered/Not Resolved]
  - Cough [Not Recovered/Not Resolved]
  - Headache [Unknown]
  - Alopecia [Unknown]
  - Drug interaction [Unknown]

NARRATIVE: CASE EVENT DATE: 20240220
